FAERS Safety Report 6386515-8 (Version None)
Quarter: 2009Q4

REPORT INFORMATION
  Report Type: 
  Country: None (occurrence: None)
  Receive Date: 20091002
  Receipt Date: 20090429
  Transmission Date: 20100525
  Serious: No
  Sender: FDA-Public Use
  Company Number: US-ASTRAZENECA-2009UW10714

PATIENT
  Age: 79 Year
  Sex: Female
  Weight: 65.3 kg

DRUGS (6)
  1. ARIMIDEX [Suspect]
     Indication: BREAST CANCER
     Route: 048
     Dates: start: 20050201
  2. ATACAND [Concomitant]
  3. METOPROLOL SUCCINATE [Concomitant]
  4. LEVOXAL [Concomitant]
  5. ASPIRIN [Concomitant]
  6. FISH OIL [Concomitant]

REACTIONS (4)
  - BODY HEIGHT DECREASED [None]
  - BONE PAIN [None]
  - HERPES ZOSTER [None]
  - PAIN [None]
